FAERS Safety Report 18840881 (Version 4)
Quarter: 2022Q3

REPORT INFORMATION
  Report Type: Spontaneous
  Country: CN (occurrence: CN)
  Receive Date: 20210203
  Receipt Date: 20220714
  Transmission Date: 20221026
  Serious: Yes (Other)
  Sender: FDA-Public Use
  Company Number: CN-GLAXOSMITHKLINE-CNCH2021003659

PATIENT

DRUGS (1)
  1. VOLTAREN [Suspect]
     Active Substance: DICLOFENAC SODIUM
     Indication: Polyarthritis

REACTIONS (7)
  - Hallucination [Not Recovered/Not Resolved]
  - Hallucination, auditory [Recovering/Resolving]
  - Nightmare [Not Recovered/Not Resolved]
  - Feeling abnormal [Not Recovered/Not Resolved]
  - Sensation of foreign body [Not Recovered/Not Resolved]
  - Conversion disorder [Not Recovered/Not Resolved]
  - Somatic symptom disorder [Not Recovered/Not Resolved]
